FAERS Safety Report 12046703 (Version 2)
Quarter: 2017Q1

REPORT INFORMATION
  Report Type: Spontaneous
  Country: US (occurrence: US)
  Receive Date: 20160209
  Receipt Date: 20170223
  Transmission Date: 20170428
  Serious: Yes (Hospitalization, Other)
  Sender: FDA-Public Use
  Company Number: US-PFIZER INC-2016064130

PATIENT
  Age: 55 Year
  Sex: Female
  Weight: 72.57 kg

DRUGS (22)
  1. VOLTAREN [Concomitant]
     Active Substance: DICLOFENAC SODIUM
     Indication: BACK PAIN
  2. ATENOLOL. [Concomitant]
     Active Substance: ATENOLOL
     Indication: HYPERTENSION
     Dosage: 100 MG, DAILY
  3. PERI-COLACE [Concomitant]
     Active Substance: CASANTHRANOL\DOCUSATE SODIUM
     Dosage: 1 DF, 2X/DAY [CASANTHRANOL: 8.6 MG; DOCUSATE SODIUM: 50 MG]
     Route: 048
  4. LYRICA [Suspect]
     Active Substance: PREGABALIN
     Indication: CHRONIC INFLAMMATORY DEMYELINATING POLYRADICULONEUROPATHY
     Dosage: 150 MG, 4X/DAY
     Route: 048
     Dates: start: 20170203
  5. VOLTAREN [Concomitant]
     Active Substance: DICLOFENAC SODIUM
     Indication: PAIN
     Dosage: 2 G, AS NEEDED (APPLY 2 G TOPICALLY 4 (FOUR) TIMES DAILY)
     Route: 061
  6. ATIVAN [Concomitant]
     Active Substance: LORAZEPAM
     Indication: INSOMNIA
     Dosage: 1 MG, AS NEEDED (TAKE 1 TABLET (1 MG TOTAL) BY MOUTH NIGHTLY)
     Route: 048
  7. VITAMIN B12 [Concomitant]
     Active Substance: CYANOCOBALAMIN
     Dosage: 1000 UG, MONTHLY [INJECT 1 ML (1,000 MCG TOTAL) INTO THE SKIN EVERY 30 (THIRTY) DAYS]
     Route: 023
  8. MOTRIN [Concomitant]
     Active Substance: IBUPROFEN
     Indication: PAIN
     Dosage: 600 MG, AS NEEDED (TAKE 600 MG BY MOUTH 4 (FOUR) TIMES DAILY)
     Route: 048
  9. PRILOSEC [Concomitant]
     Active Substance: OMEPRAZOLE MAGNESIUM
     Dosage: 40 MG, 1X/DAY (TAKE 1 CAPSULE (40 MG TOTAL) EVERY MORNING BEFORE BREAKFAST)
     Route: 048
  10. CATAPRES [Concomitant]
     Active Substance: CLONIDINE HYDROCHLORIDE
     Dosage: 0.1 MG, AS NEEDED (TAKE 1 TABLET (0.1 MG TOTAL) BY MOUTH DAILY AS NEEDED 30 MINUTES BEFORE INFUSION)
     Route: 048
  11. ADVIL [Concomitant]
     Active Substance: IBUPROFEN
     Indication: PAIN
     Dosage: 600 MG, AS NEEDED (TAKE 600 MG BY MOUTH 4 (FOUR) TIMES DAILY)
     Route: 048
  12. GAMMA GLOBULINA [Concomitant]
     Dosage: UNK
     Route: 042
  13. ATIVAN [Concomitant]
     Active Substance: LORAZEPAM
     Indication: ANXIETY
  14. DELTASONE [Concomitant]
     Active Substance: PREDNISONE
     Dosage: 10 MG, DAILY [TAKE 10 TABLETS (10 MG TOTAL)]
     Route: 048
  15. LYRICA [Suspect]
     Active Substance: PREGABALIN
     Indication: NEURALGIA
     Dosage: 150 MG, 4X/DAY
     Route: 048
     Dates: start: 2013
  16. KLONOPIN [Concomitant]
     Active Substance: CLONAZEPAM
     Dosage: 2 MG, DAILY (TAKE ONE-HALF TABLET BY MOUTH IN THE MORNING, ONE -HALF TABLET AT NOON, AND ONE TABLE)
     Route: 048
  17. VITAMIN D2 [Concomitant]
     Active Substance: ERGOCALCIFEROL
     Dosage: 50000 IU, WEEKLY (TAKE 1 CAPSULE (50,000 UNITS TOTAL)
     Route: 048
  18. ATARAX [Concomitant]
     Active Substance: HYDROXYZINE HYDROCHLORIDE
     Indication: PRURITUS
     Dosage: 25 MG, AS NEEDED (TAKE 1 TABLET (25 MG TOTAL) BY MOUTH 3 (THREE) TIMES)
     Route: 048
  19. METAMUCI [Concomitant]
     Dosage: 15 ML, DAILY(FIRST MEASURE AND MIX DOSE IN FULL GLASS OF WATER)
     Route: 048
  20. TOPAMAX [Concomitant]
     Active Substance: TOPIRAMATE
     Dosage: 50 MG, DAILY (TAKE 1 TAB PO Q DAY X 1 WEEK, THEN TAKE 2 TABS PO Q DAY THEREAFTER)
     Route: 048
  21. TENORMIN [Concomitant]
     Active Substance: ATENOLOL
     Dosage: 100 MG, DAILY
     Route: 048
  22. TOPAMAX [Concomitant]
     Active Substance: TOPIRAMATE
     Dosage: 25 MG, DAILY (TAKE 1 TAB PO Q DAY X 1 WEEK)
     Route: 048

REACTIONS (13)
  - Paraesthesia [Recovering/Resolving]
  - Insomnia [Unknown]
  - Blood pressure increased [Recovering/Resolving]
  - Asthenia [Recovering/Resolving]
  - Hypoaesthesia [Recovering/Resolving]
  - Product use issue [Unknown]
  - Drug withdrawal syndrome [Recovering/Resolving]
  - Drug dose omission [Unknown]
  - Pain [Recovering/Resolving]
  - Hyperhidrosis [Recovered/Resolved]
  - Inflammation [Recovering/Resolving]
  - Abasia [Recovering/Resolving]
  - Dyspnoea [Unknown]

NARRATIVE: CASE EVENT DATE: 2013
